FAERS Safety Report 12109555 (Version 1)
Quarter: 2016Q1

REPORT INFORMATION
  Report Type: Spontaneous
  Country: US (occurrence: None)
  Receive Date: 20160222
  Receipt Date: 20160222
  Transmission Date: 20160526
  Serious: Yes (Hospitalization)
  Sender: FDA-Public Use
  Company Number: None

PATIENT
  Age: 13 Year
  Sex: Male
  Weight: 19.5 kg

DRUGS (3)
  1. SOTALOL. [Concomitant]
     Active Substance: SOTALOL
  2. AMANTIDINE 100 MG [Suspect]
     Active Substance: AMANTADINE
     Indication: ATTENTION DEFICIT/HYPERACTIVITY DISORDER
     Route: 048
     Dates: start: 20151026, end: 20160211
  3. DIGOXIN. [Concomitant]
     Active Substance: DIGOXIN

REACTIONS (9)
  - Mental status changes [None]
  - Aphasia [None]
  - Confusional state [None]
  - Headache [None]
  - Electrocardiogram QT prolonged [None]
  - Disorientation [None]
  - Oedema peripheral [None]
  - Memory impairment [None]
  - Crying [None]

NARRATIVE: CASE EVENT DATE: 20160210
